FAERS Safety Report 9280087 (Version 1)
Quarter: 2013Q2

REPORT INFORMATION
  Report Type: Spontaneous
  Country: US (occurrence: None)
  Receive Date: 20130507
  Receipt Date: 20130507
  Transmission Date: 20140414
  Serious: No
  Sender: FDA-Public Use
  Company Number: None

PATIENT
  Age: 56 Year
  Sex: Female
  Weight: 79.83 kg

DRUGS (1)
  1. RIZATRIPTAN [Suspect]
     Indication: MIGRAINE
     Dosage: 1 TAB
     Route: 048
     Dates: start: 20130422, end: 20130506

REACTIONS (2)
  - Drug ineffective [None]
  - Product substitution issue [None]
